FAERS Safety Report 16883975 (Version 1)
Quarter: 2019Q4

REPORT INFORMATION
  Report Type: Spontaneous
  Country: CA (occurrence: CA)
  Receive Date: 20191004
  Receipt Date: 20191004
  Transmission Date: 20200122
  Serious: Yes (Other)
  Sender: FDA-Public Use
  Company Number: CA-SA-2019SA268592

PATIENT
  Age: 72 Year
  Sex: Female
  Weight: 84 kg

DRUGS (1)
  1. FABRAZYME [Suspect]
     Active Substance: AGALSIDASE BETA
     Dosage: 90 MG, Q2W
     Route: 041
     Dates: start: 2017

REACTIONS (1)
  - Hypothermia [Unknown]
